FAERS Safety Report 10074459 (Version 1)
Quarter: 2014Q2

REPORT INFORMATION
  Report Type: Spontaneous
  Country: US (occurrence: US)
  Receive Date: 20140411
  Receipt Date: 20140411
  Transmission Date: 20141212
  Serious: No
  Sender: FDA-Public Use
  Company Number: US-SANOFI-AVENTIS-2013SA093389

PATIENT
  Age: 39 Year
  Sex: Female
  Weight: 54.43 kg

DRUGS (2)
  1. ALLEGRA D [Suspect]
     Indication: SINUSITIS
     Dosage: TAKEN FROM: 7 SEP ?TAKEN TO: 7 SEP
     Route: 048
  2. ALLEGRA D [Suspect]
     Indication: HYPERSENSITIVITY
     Dosage: TAKEN FROM: 7 SEP ?TAKEN TO: 7 SEP
     Route: 048

REACTIONS (4)
  - Hyperhidrosis [Recovered/Resolved]
  - Feeling jittery [Recovered/Resolved]
  - Feeling abnormal [Recovered/Resolved]
  - Insomnia [Recovered/Resolved]
